FAERS Safety Report 4688652-2 (Version None)
Quarter: 2005Q2

REPORT INFORMATION
  Report Type: 
  Country: None (occurrence: None)
  Receive Date: 20050613
  Receipt Date: 20050607
  Transmission Date: 20051028
  Serious: Yes (Other)
  Sender: FDA-Public Use
  Company Number: US-JNJFOC-20041106744

PATIENT
  Sex: Female
  Weight: 53.52 kg

DRUGS (7)
  1. DURAGESIC-100 [Suspect]
     Dosage: THREE 100 UG/HR PATCHES (PATIENT CHANGES ONE 100 UG/HR PATCH EACH DAY).
     Route: 062
     Dates: start: 19940101
  2. OXYCONTIN [Concomitant]
     Indication: THERAPEUTIC RESPONSE DECREASED
     Dosage: 2 EVERY 4 HOURS, AS NECESSARY
     Route: 049
     Dates: start: 19940101
  3. SEROQUEL [Concomitant]
     Indication: POST-TRAUMATIC STRESS DISORDER
     Dosage: AT BEDTIME
     Route: 049
     Dates: start: 19940101
  4. CALTRATE [Concomitant]
     Dosage: TWICE DAILY
  5. ENULOSE [Concomitant]
     Dosage: 2 TABLESPOONS DAILY AS NECESSARY
  6. BENTYL [Concomitant]
     Dosage: AS NECESSARY
  7. KEPPRA [Concomitant]
     Dosage: TWICE PER DAY

REACTIONS (10)
  - ABDOMINAL PAIN [None]
  - ALANINE AMINOTRANSFERASE INCREASED [None]
  - ASPARTATE AMINOTRANSFERASE INCREASED [None]
  - BILIARY DILATATION [None]
  - BLOOD ALKALINE PHOSPHATASE INCREASED [None]
  - CHOLELITHIASIS [None]
  - CONSTIPATION [None]
  - CONVULSION [None]
  - INCORRECT DRUG ADMINISTRATION RATE [None]
  - LIVER FUNCTION TEST ABNORMAL [None]
